FAERS Safety Report 6154614-1 (Version None)
Quarter: 2009Q2

REPORT INFORMATION
  Report Type: 
  Country: None (occurrence: None)
  Receive Date: 20090414
  Receipt Date: 20090406
  Transmission Date: 20091009
  Serious: Yes (Other)
  Sender: FDA-Public Use
  Company Number: US-ELI_LILLY_AND_COMPANY-US200902000356

PATIENT
  Sex: Male

DRUGS (10)
  1. HUMATROPE [Suspect]
     Indication: HYPOPITUITARISM
     Dosage: 0.2 MG, DAILY (1/D)
     Dates: start: 20030908
  2. HUMATROPE [Suspect]
     Dosage: 0.5 MG, DAILY (1/D)
     Dates: start: 20031211
  3. HUMATROPE [Suspect]
     Dosage: 0.4 MG, UNKNOWN
     Dates: start: 20040512
  4. HUMATROPE [Suspect]
     Dosage: 0.8 MG, UNKNOWN
     Dates: start: 20041110
  5. HUMATROPE [Suspect]
     Dosage: 0.7 MG, UNKNOWN
     Dates: start: 20050516
  6. HUMATROPE [Suspect]
     Dosage: 0.6 MG, UNKNOWN
     Dates: start: 20050620
  7. HUMATROPE [Suspect]
     Dosage: 0.3 MG, UNKNOWN
     Dates: start: 20050722
  8. HUMATROPE [Suspect]
     Dosage: 0.35 MG, UNKNOWN
     Dates: start: 20050830
  9. HUMATROPE [Suspect]
     Dosage: 0.7 MG, UNKNOWN
     Dates: start: 20051213
  10. HUMATROPE [Suspect]
     Dosage: 0.2 MG, 2/D
     Dates: start: 20071107, end: 20090129

REACTIONS (2)
  - GASTRIC CANCER [None]
  - OESOPHAGEAL CARCINOMA [None]
